FAERS Safety Report 6860961-8 (Version None)
Quarter: 2010Q3

REPORT INFORMATION
  Report Type: 
  Country: None (occurrence: None)
  Receive Date: 20100720
  Receipt Date: 20100705
  Transmission Date: 20110219
  Serious: Yes (Other)
  Sender: FDA-Public Use
  Company Number: GB-GENENTECH-304314

PATIENT
  Age: 83 Year
  Sex: Female

DRUGS (2)
  1. LUCENTIS [Suspect]
     Indication: PRODUCT USED FOR UNKNOWN INDICATION
     Dosage: 5 MG, UNK
     Route: 031
     Dates: start: 20090828
  2. LUCENTIS [Suspect]
     Dosage: 5 MG, UNK
     Route: 031
     Dates: start: 20091013

REACTIONS (1)
  - CEREBROVASCULAR ACCIDENT [None]
